FAERS Safety Report 7629706-8 (Version None)
Quarter: 2011Q3

REPORT INFORMATION
  Report Type: 
  Country: None (occurrence: None)
  Receive Date: 20110722
  Receipt Date: 20110713
  Transmission Date: 20111222
  Serious: No
  Sender: FDA-Public Use
  Company Number: AU-JNJFOC-20110705969

PATIENT
  Sex: Male
  Weight: 82 kg

DRUGS (2)
  1. DURAGESIC-12 [Suspect]
     Route: 062
     Dates: start: 20101111
  2. DURAGESIC-12 [Suspect]
     Indication: PAIN
     Route: 062
     Dates: start: 20101111

REACTIONS (3)
  - DRUG EFFECT DECREASED [None]
  - WRONG TECHNIQUE IN DRUG USAGE PROCESS [None]
  - PRODUCT QUALITY ISSUE [None]
